FAERS Safety Report 5310333-2 (Version None)
Quarter: 2007Q2

REPORT INFORMATION
  Report Type: 
  Country: None (occurrence: None)
  Receive Date: 20070427
  Receipt Date: 20070423
  Transmission Date: 20071010
  Serious: Yes (Hospitalization)
  Sender: FDA-Public Use
  Company Number: FR-BRISTOL-MYERS SQUIBB COMPANY-13758396

PATIENT
  Age: 85 Year
  Sex: Female
  Weight: 66 kg

DRUGS (3)
  1. COAPROVEL [Suspect]
     Indication: ESSENTIAL HYPERTENSION
     Route: 048
     Dates: end: 20070314
  2. KARDEGIC [Concomitant]
     Route: 048
     Dates: end: 20070314
  3. DEPAKENE [Concomitant]
     Route: 048

REACTIONS (8)
  - BLOOD POTASSIUM INCREASED [None]
  - DISORIENTATION [None]
  - HEMIPLEGIA [None]
  - HYPONATRAEMIA [None]
  - OEDEMA PERIPHERAL [None]
  - OLIGURIA [None]
  - RENAL CYST [None]
  - RENAL FAILURE [None]
